FAERS Safety Report 25133326 (Version 1)
Quarter: 2025Q1

REPORT INFORMATION
  Report Type: Spontaneous
  Country: US (occurrence: US)
  Receive Date: 20250328
  Receipt Date: 20250328
  Transmission Date: 20250409
  Serious: No
  Sender: GRIFOLS
  Company Number: US-IGSA-BIG0033768

PATIENT
  Age: 14 Year
  Sex: Male

DRUGS (2)
  1. GAMUNEX-C [Suspect]
     Active Substance: HUMAN IMMUNOGLOBULIN G
     Indication: Hypergammaglobulinaemia
     Dosage: 20 GRAM, Q.M.T.
     Route: 042
     Dates: start: 20250210
  2. GAMUNEX-C [Suspect]
     Active Substance: HUMAN IMMUNOGLOBULIN G
     Dosage: 20 GRAM, Q.M.T.
     Route: 042
     Dates: start: 20250310

REACTIONS (4)
  - Epistaxis [Recovering/Resolving]
  - Wheezing [Unknown]
  - Chest discomfort [Unknown]
  - Inflammation [Unknown]

NARRATIVE: CASE EVENT DATE: 20250210
